FAERS Safety Report 5619965-5 (Version None)
Quarter: 2008Q1

REPORT INFORMATION
  Report Type: 
  Country: None (occurrence: None)
  Receive Date: 20080208
  Receipt Date: 20080201
  Transmission Date: 20080703
  Serious: Yes (Other)
  Sender: FDA-Public Use
  Company Number: HQWYE352217AUG04

PATIENT
  Sex: Female

DRUGS (2)
  1. PREMARIN [Suspect]
  2. PREMARIN [Suspect]

REACTIONS (2)
  - CONTRALATERAL BREAST CANCER [None]
  - OVARIAN CANCER METASTATIC [None]
